FAERS Safety Report 10017706 (Version 1)
Quarter: 2014Q1

REPORT INFORMATION
  Report Type: Spontaneous
  Country: US (occurrence: US)
  Receive Date: 20140318
  Receipt Date: 20140318
  Transmission Date: 20141002
  Serious: No
  Sender: FDA-Public Use
  Company Number: US-BRISTOL-MYERS SQUIBB COMPANY-17439506

PATIENT
  Age: 50 Year
  Sex: Female

DRUGS (3)
  1. ERBITUX [Suspect]
     Indication: GASTRIC CANCER
  2. COMPAZINE [Concomitant]
  3. ATIVAN [Concomitant]

REACTIONS (6)
  - Decreased appetite [Unknown]
  - Dysgeusia [Unknown]
  - Rash [Unknown]
  - Hair texture abnormal [Unknown]
  - Weight decreased [Unknown]
  - Nausea [Unknown]
